FAERS Safety Report 16868900 (Version 1)
Quarter: 2019Q3

REPORT INFORMATION
  Report Type: Spontaneous
  Country: US (occurrence: US)
  Receive Date: 20190930
  Receipt Date: 20190930
  Transmission Date: 20191005
  Serious: Yes (Other)
  Sender: FDA-Public Use
  Company Number: US-GALDERMA-US19060004

PATIENT
  Age: 70 Year
  Sex: Female

DRUGS (6)
  1. PROACTIV MD DEEP CLEANSING FACE WASH [Concomitant]
     Active Substance: COSMETICS
     Indication: MALIGNANT MELANOMA
     Route: 061
     Dates: start: 20190222, end: 2019
  2. PROACTIV DEEP CLEANSING WASH [Concomitant]
     Active Substance: SALICYLIC ACID
     Indication: MALIGNANT MELANOMA
     Route: 061
     Dates: start: 20190222, end: 2019
  3. PROACTIV SOLUTION BLACKHEAD DISSOLVING [Concomitant]
     Active Substance: SALICYLIC ACID
     Indication: MALIGNANT MELANOMA
     Route: 061
     Dates: start: 20190222, end: 2019
  4. PROACTIV MD ADAPALENE ACNE TREATMENT [Suspect]
     Active Substance: ADAPALENE
     Indication: MALIGNANT MELANOMA
     Dosage: 0.1%
     Route: 061
     Dates: start: 20190222, end: 2019
  5. PROACTIV GREEN TEA MOISTURIZER [Concomitant]
     Active Substance: COSMETICS
     Indication: MALIGNANT MELANOMA
     Route: 061
     Dates: start: 20190222, end: 2019
  6. PROACTIV MD DAILY OIL CONTROL SPF 30 [Suspect]
     Active Substance: AVOBENZONE\OCTISALATE\OCTOCRYLENE
     Indication: MALIGNANT MELANOMA
     Route: 061
     Dates: start: 20190222, end: 2019

REACTIONS (3)
  - Condition aggravated [Recovered/Resolved]
  - Malignant melanoma [Recovered/Resolved]
  - Product use in unapproved indication [Recovered/Resolved]

NARRATIVE: CASE EVENT DATE: 2019
